FAERS Safety Report 14141720 (Version 1)
Quarter: 2017Q4

REPORT INFORMATION
  Report Type: Spontaneous
  Country: PE (occurrence: PE)
  Receive Date: 20171030
  Receipt Date: 20171030
  Transmission Date: 20180321
  Serious: Yes (Hospitalization, Disabling, Other)
  Sender: FDA-Public Use
  Company Number: PE-GLAXOSMITHKLINE-PE2017GSK161956

PATIENT
  Sex: Female

DRUGS (1)
  1. SERETIDE [Suspect]
     Active Substance: FLUTICASONE PROPIONATE\SALMETEROL XINAFOATE
     Indication: ASTHMA
     Dosage: 250 ?G, BID
     Route: 055

REACTIONS (5)
  - Ulna fracture [Recovering/Resolving]
  - Hemiparesis [Not Recovered/Not Resolved]
  - Pulmonary congestion [Unknown]
  - Accident [Unknown]
  - Radius fracture [Recovering/Resolving]
